FAERS Safety Report 25232465 (Version 2)
Quarter: 2025Q3

REPORT INFORMATION
  Report Type: Report from Study
  Country: US (occurrence: US)
  Receive Date: 20250423
  Receipt Date: 20250714
  Transmission Date: 20251021
  Serious: Yes (Other)
  Sender: ABBVIE
  Company Number: US-ABBVIE-5984793

PATIENT
  Age: 79 Year
  Sex: Male

DRUGS (2)
  1. HUMIRA [Suspect]
     Active Substance: ADALIMUMAB
     Indication: Colitis ulcerative
     Route: 058
  2. INFLUENZA VIRUS VACCINE [Suspect]
     Active Substance: INFLUENZA VIRUS VACCINE
     Indication: Product used for unknown indication
     Route: 065

REACTIONS (14)
  - Pancreatic neoplasm [Unknown]
  - Basal cell carcinoma [Unknown]
  - Large intestine polyp [Unknown]
  - Nasopharyngitis [Unknown]
  - Influenza [Unknown]
  - Thrombosis [Unknown]
  - Memory impairment [Unknown]
  - Transient acantholytic dermatosis [Unknown]
  - Pancreatic cyst [Unknown]
  - Atrial fibrillation [Unknown]
  - Rash pruritic [Not Recovered/Not Resolved]
  - Platelet count decreased [Unknown]
  - Red blood cell count decreased [Unknown]
  - Fatigue [Unknown]

NARRATIVE: CASE EVENT DATE: 20240701
